FAERS Safety Report 7055571-6 (Version None)
Quarter: 2010Q4

REPORT INFORMATION
  Report Type: 
  Country: None (occurrence: None)
  Receive Date: 20101020
  Receipt Date: 20101020
  Transmission Date: 20110411
  Serious: Yes (Other)
  Sender: FDA-Public Use
  Company Number: None

PATIENT
  Age: 53 Year
  Sex: Male

DRUGS (1)
  1. LISTERINE TOTAL CARE PLUS WHITENING ANTI-CAVITY MOUTHWASH [Suspect]
     Indication: DENTAL DISORDER PROPHYLAXIS
     Dosage: TWICE A DAY
     Route: 048
     Dates: start: 20101017, end: 20101017

REACTIONS (5)
  - FEELING ABNORMAL [None]
  - HEADACHE [None]
  - PRODUCT ODOUR ABNORMAL [None]
  - PRODUCT TASTE ABNORMAL [None]
  - SEDATION [None]
